FAERS Safety Report 13141666 (Version 1)
Quarter: 2017Q1

REPORT INFORMATION
  Report Type: Report from Study
  Country: None (occurrence: BR)
  Receive Date: 20170123
  Receipt Date: 20170123
  Transmission Date: 20170428
  Serious: Yes (Death, Hospitalization)
  Sender: FDA-Public Use
  Company Number: BR-ABBVIE-17P-020-1843537-00

PATIENT
  Age: 71 Year
  Sex: Female
  Weight: 43 kg

DRUGS (1)
  1. HUMIRA [Suspect]
     Active Substance: ADALIMUMAB
     Indication: RHEUMATOID ARTHRITIS
     Route: 058
     Dates: start: 20120301

REACTIONS (5)
  - Unevaluable event [Fatal]
  - Pneumonia [Fatal]
  - Gallbladder disorder [Fatal]
  - Renal disorder [Fatal]
  - Decreased appetite [Unknown]

NARRATIVE: CASE EVENT DATE: 201612
